FAERS Safety Report 12623324 (Version 1)
Quarter: 2016Q3

REPORT INFORMATION
  Report Type: Spontaneous
  Country: FR (occurrence: FR)
  Receive Date: 20160804
  Receipt Date: 20160804
  Transmission Date: 20161109
  Serious: Yes (Other)
  Sender: FDA-Public Use
  Company Number: FR-MYLANLABS-2016M1028298

PATIENT

DRUGS (6)
  1. PARIET [Concomitant]
     Active Substance: RABEPRAZOLE SODIUM
     Indication: GASTROOESOPHAGEAL REFLUX DISEASE
     Dosage: 20 MG, QD
     Route: 048
     Dates: start: 20160412
  2. FORMOTEROL MYLAN [Suspect]
     Active Substance: FORMOTEROL
     Indication: CHRONIC OBSTRUCTIVE PULMONARY DISEASE
     Dosage: 12 ?G, QID
     Route: 055
     Dates: start: 20160412, end: 20160420
  3. SPIRIVA [Concomitant]
     Active Substance: TIOTROPIUM BROMIDE MONOHYDRATE
     Indication: ASTHMA
     Dosage: 18 ?G, QD
     Route: 055
     Dates: start: 20091015
  4. FORMOTEROL MYLAN [Suspect]
     Active Substance: FORMOTEROL
     Indication: ASTHMA
  5. MIFLONIL [Concomitant]
     Active Substance: BUDESONIDE
     Indication: ASTHMA
     Dosage: 400 ?G, TID
     Route: 055
     Dates: start: 20070726
  6. LEXOMIL [Concomitant]
     Active Substance: BROMAZEPAM
     Indication: ANXIETY
     Dosage: 6 MG, QD
     Route: 048
     Dates: start: 20020910

REACTIONS (4)
  - Dyspnoea [Unknown]
  - Drug ineffective [Unknown]
  - Product quality issue [Unknown]
  - Insomnia [Unknown]

NARRATIVE: CASE EVENT DATE: 20160412
